FAERS Safety Report 6993134-9 (Version None)
Quarter: 2010Q3

REPORT INFORMATION
  Report Type: 
  Country: None (occurrence: None)
  Receive Date: 20100917
  Receipt Date: 20100907
  Transmission Date: 20110219
  Serious: Yes (Life-Threatening, Hospitalization)
  Sender: FDA-Public Use
  Company Number: US-WYE-H17369510

PATIENT
  Sex: Male
  Weight: 77.18 kg

DRUGS (7)
  1. PROTONIX [Suspect]
     Indication: GASTROOESOPHAGEAL REFLUX DISEASE
     Route: 048
     Dates: start: 19900101
  2. CLONOPIN [Suspect]
     Indication: ANXIETY
     Dosage: 0.5 MG DAILY PRN
     Route: 048
     Dates: start: 20100501
  3. TAMSULOSIN HCL [Suspect]
     Indication: NEPHROLITHIASIS
     Route: 048
     Dates: start: 20090101
  4. TAMSULOSIN HCL [Suspect]
     Indication: PROPHYLAXIS
  5. PAXIL [Suspect]
     Indication: DEPRESSION
     Route: 048
     Dates: start: 20080101
  6. FENTANYL [Suspect]
     Indication: PAIN
     Route: 062
     Dates: start: 20100820
  7. BUPROPION HYDROCHLORIDE [Suspect]
     Indication: DEPRESSION
     Route: 048
     Dates: start: 20080101, end: 20100820

REACTIONS (4)
  - CONVULSION [None]
  - RESPIRATORY ARREST [None]
  - RESPIRATORY DEPRESSION [None]
  - UNRESPONSIVE TO STIMULI [None]
